FAERS Safety Report 11852608 (Version 2)
Quarter: 2017Q1

REPORT INFORMATION
  Report Type: Spontaneous
  Country: US (occurrence: US)
  Receive Date: 20161218
  Receipt Date: 20170111
  Transmission Date: 20170428
  Serious: No
  Sender: FDA-Public Use
  Company Number: US-SIGMAPHARM LABORATORIES, LLC-2015SIG00044

PATIENT
  Age: 64 Year
  Sex: Female
  Weight: 68.27 kg

DRUGS (3)
  1. OXYBUTYNIN [Concomitant]
     Active Substance: OXYBUTYNIN
     Dosage: 5 MG, 1X/DAY
  2. ^ANOTHER T3^ PRODUCT (ALPHAPHARM) [Suspect]
     Active Substance: LIOTHYRONINE SODIUM
     Indication: HYPOTHYROIDISM
     Dosage: 25 MCG, 1X/DAY
     Dates: start: 201605
  3. LIOTHYRONINE SODIUM. [Suspect]
     Active Substance: LIOTHYRONINE SODIUM
     Indication: HYPOTHYROIDISM
     Dosage: 25 MCG 1X DAY
     Route: 048
     Dates: start: 20150525

REACTIONS (5)
  - Dizziness [Recovered/Resolved]
  - Food craving [Recovered/Resolved]
  - Hypoglycaemia [Recovered/Resolved]
  - Tremor [Not Recovered/Not Resolved]
  - Nausea [Recovered/Resolved]

NARRATIVE: CASE EVENT DATE: 201605
